FAERS Safety Report 9030387 (Version 2)
Quarter: 2013Q1

REPORT INFORMATION
  Report Type: Report from Study
  Country: FR (occurrence: FR)
  Receive Date: 20130122
  Receipt Date: 20130129
  Transmission Date: 20140127
  Serious: Yes (Life-Threatening)
  Sender: FDA-Public Use
  Company Number: FR-CELGENEUS-056-50794-13011972

PATIENT
  Age: 84 Year
  Sex: Male
  Weight: 68 kg

DRUGS (7)
  1. REVLIMID [Suspect]
     Indication: MYELODYSPLASTIC SYNDROME
     Route: 048
     Dates: start: 20121217, end: 20121230
  2. VIDAZA [Suspect]
     Indication: MYELODYSPLASTIC SYNDROME
     Dosage: 137 MILLIGRAM
     Route: 058
     Dates: start: 20121217, end: 20121225
  3. LERCAN [Concomitant]
     Indication: HYPERTENSION
     Route: 048
  4. TEMERIT [Concomitant]
     Indication: HYPERTENSION
     Route: 048
  5. ALDACTONE [Concomitant]
     Indication: HYPERTENSION
     Route: 048
  6. INEXIUM [Concomitant]
     Indication: GASTROOESOPHAGEAL REFLUX DISEASE
     Route: 048
  7. EZETROL [Concomitant]
     Indication: HYPERCHOLESTEROLAEMIA
     Route: 048
     Dates: start: 20120626

REACTIONS (1)
  - Ischaemic stroke [Not Recovered/Not Resolved]
